FAERS Safety Report 7518058-X (Version None)
Quarter: 2011Q2

REPORT INFORMATION
  Report Type: 
  Country: None (occurrence: None)
  Receive Date: 20110531
  Receipt Date: 20110531
  Transmission Date: 20111010
  Serious: No
  Sender: FDA-Public Use
  Company Number: None

PATIENT
  Age: 96 Year
  Sex: Female
  Weight: 34.0198 kg

DRUGS (1)
  1. NISOLDIPINE [Suspect]
     Indication: HYPERTENSION
     Dosage: 25.5MG QD PO LESS THAN 1 WEEK
     Route: 048
     Dates: start: 20110312, end: 20110318

REACTIONS (4)
  - RASH [None]
  - THROAT TIGHTNESS [None]
  - PRODUCT SUBSTITUTION ISSUE [None]
  - FURUNCLE [None]
